FAERS Safety Report 26001194 (Version 1)
Quarter: 2025Q4

REPORT INFORMATION
  Report Type: Spontaneous
  Country: EU (occurrence: EU)
  Receive Date: 20251105
  Receipt Date: 20251105
  Transmission Date: 20260117
  Serious: Yes (Life-Threatening, Other)
  Sender: PFIZER
  Company Number: None

PATIENT
  Age: 53 Year
  Sex: Female

DRUGS (2)
  1. SPIRONOLACTONE [Interacting]
     Active Substance: SPIRONOLACTONE
     Indication: Hypertensive heart disease
     Dosage: 150 MG, 1X/DAY
     Route: 048
     Dates: end: 20251009
  2. BUMETANIDE [Interacting]
     Active Substance: BUMETANIDE
     Indication: Hypertensive heart disease
     Dosage: 20 MG, 1X/DAY
     Route: 048
     Dates: end: 20251009

REACTIONS (2)
  - Acute kidney injury [Recovered/Resolved]
  - Drug interaction [Recovered/Resolved]

NARRATIVE: CASE EVENT DATE: 20251009
